FAERS Safety Report 8532292-1 (Version None)
Quarter: 2012Q3

REPORT INFORMATION
  Report Type: 
  Country: None (occurrence: None)
  Receive Date: 20120724
  Receipt Date: 20120712
  Transmission Date: 20120928
  Serious: Yes (Death, Hospitalization)
  Sender: FDA-Public Use
  Company Number: DE-BRISTOL-MYERS SQUIBB COMPANY-16770604

PATIENT
  Age: 71 Year
  Sex: Male
  Weight: 72 kg

DRUGS (5)
  1. LEUCOVORIN CALCIUM [Concomitant]
     Indication: COLORECTAL CANCER METASTATIC
     Dosage: REDUCED TO 70% ON 23JUN11
     Dates: start: 20101201, end: 20120606
  2. ONDANSETRON [Concomitant]
     Indication: PREMEDICATION
     Dosage: 1DEC-1DEC2010 15DEC-15DEC10
     Dates: start: 20101201, end: 20101201
  3. FLUOROURACIL [Concomitant]
     Indication: COLORECTAL CANCER METASTATIC
     Dates: start: 20101201, end: 20120606
  4. OXALIPLATIN [Concomitant]
     Indication: COLORECTAL CANCER METASTATIC
     Dosage: REDUCED TO 70% ON 23JUN11
     Dates: start: 20101201, end: 20120606
  5. ERBITUX [Suspect]
     Indication: COLORECTAL CANCER METASTATIC
     Dosage: WEEKLY DOSE:250MG/M2 SINCE 15DEC10(ABSOLUTE DOSE:466MG FROM19JAN-28SEP11) RECENT INF:6JUN12
     Route: 042
     Dates: start: 20101201, end: 20101201

REACTIONS (3)
  - SEPSIS [None]
  - PYREXIA [None]
  - DYSPNOEA [None]
